FAERS Safety Report 24138291 (Version 1)
Quarter: 2024Q3

REPORT INFORMATION
  Report Type: Spontaneous
  Country: US (occurrence: US)
  Receive Date: 20240725
  Receipt Date: 20240725
  Transmission Date: 20241016
  Serious: No
  Sender: TEIKOKU
  Company Number: US-TPU-TPU-2024-00399

PATIENT
  Age: 44 Year
  Sex: Female

DRUGS (4)
  1. LIDODERM [Suspect]
     Active Substance: LIDOCAINE
     Indication: Osteoarthritis
     Dates: start: 2004
  2. HYDROCODONE [Concomitant]
     Active Substance: HYDROCODONE
  3. LYRICA [Concomitant]
     Active Substance: PREGABALIN
     Indication: Fibromyalgia
  4. FERROUS SULFATE [Concomitant]
     Active Substance: FERROUS SULFATE
     Indication: Iron deficiency

REACTIONS (6)
  - Fibromyalgia [Unknown]
  - Inability to afford medication [Unknown]
  - Intervertebral disc protrusion [Unknown]
  - Knee arthroplasty [Unknown]
  - Vertigo [Unknown]
  - Amnesia [Unknown]

NARRATIVE: CASE EVENT DATE: 20040101
